FAERS Safety Report 12115436 (Version 1)
Quarter: 2016Q1

REPORT INFORMATION
  Report Type: Spontaneous
  Country: US (occurrence: US)
  Receive Date: 20160225
  Receipt Date: 20160225
  Transmission Date: 20160526
  Serious: Yes (Other)
  Sender: FDA-Public Use
  Company Number: US-BAYER-2016-036761

PATIENT
  Age: 26 Year
  Sex: Female

DRUGS (1)
  1. ULTRAVIST [Suspect]
     Active Substance: IOPROMIDE
     Indication: COMPUTERISED TOMOGRAM
     Dosage: UNK
     Dates: start: 20150804, end: 20150804

REACTIONS (4)
  - Oral pruritus [Recovering/Resolving]
  - Throat irritation [Recovering/Resolving]
  - Pharyngeal oedema [None]
  - Ear pruritus [Recovering/Resolving]

NARRATIVE: CASE EVENT DATE: 20150804
